FAERS Safety Report 17734131 (Version 8)
Quarter: 2021Q1

REPORT INFORMATION
  Report Type: Spontaneous
  Country: US (occurrence: US)
  Receive Date: 20200501
  Receipt Date: 20210323
  Transmission Date: 20210419
  Serious: Yes (Other)
  Sender: FDA-Public Use
  Company Number: US-PFIZER INC-2020174888

PATIENT
  Age: 39 Year
  Sex: Female

DRUGS (3)
  1. XELJANZ XR [Suspect]
     Active Substance: TOFACITINIB CITRATE
     Dosage: 11 MG, UNK
     Dates: start: 202005, end: 2020
  2. XELJANZ XR [Suspect]
     Active Substance: TOFACITINIB CITRATE
     Dosage: 11 MG, UNK
     Dates: end: 20210303
  3. XELJANZ XR [Suspect]
     Active Substance: TOFACITINIB CITRATE
     Dosage: 11 MG, UNK
     Dates: start: 2020, end: 202011

REACTIONS (10)
  - Herpes zoster [Unknown]
  - Oesophageal disorder [Unknown]
  - Inflammation [Unknown]
  - Gastritis [Unknown]
  - COVID-19 [Unknown]
  - Musculoskeletal stiffness [Unknown]
  - Nail infection [Unknown]
  - Oesophagitis [Unknown]
  - Pain [Unknown]
  - Condition aggravated [Recovering/Resolving]

NARRATIVE: CASE EVENT DATE: 2020
